FAERS Safety Report 9206627 (Version 1)
Quarter: 2013Q2

REPORT INFORMATION
  Report Type: Spontaneous
  Country: US (occurrence: US)
  Receive Date: 20130403
  Receipt Date: 20130403
  Transmission Date: 20140414
  Serious: Yes (Hospitalization)
  Sender: FDA-Public Use
  Company Number: US-SANOFI-AVENTIS-2013SA034538

PATIENT
  Age: 71 Year
  Sex: Male

DRUGS (3)
  1. LANTUS [Suspect]
     Indication: DIABETES MELLITUS
     Dosage: STARTED SINCE COUPLE OF YEARS DOSE:20 UNIT(S)
     Route: 051
  2. LANTUS [Suspect]
     Indication: DIABETES MELLITUS
     Dosage: TAKEN 10 UNITS LAST NIGHT DOSE:10 UNIT(S)
     Route: 051
  3. ACTOS /USA/ [Suspect]

REACTIONS (3)
  - Cardiac failure congestive [Unknown]
  - Fluid retention [Unknown]
  - Blood glucose increased [Unknown]
